FAERS Safety Report 13540695 (Version 4)
Quarter: 2018Q4

REPORT INFORMATION
  Report Type: Other
  Country: None (occurrence: PE)
  Receive Date: 20170512
  Receipt Date: 20181016
  Transmission Date: 20190204
  Serious: Yes (Other)
  Sender: FDA-Public Use
  Company Number: PE-POPULATION COUNCIL, INC.-2020647

PATIENT
  Age: 28 Year
  Sex: Female

DRUGS (1)
  1. JADELLE [Suspect]
     Active Substance: LEVONORGESTREL
     Indication: CONTRACEPTION
     Route: 059
     Dates: start: 20170324, end: 20170427

REACTIONS (3)
  - Pregnancy with implant contraceptive [Recovered/Resolved]
  - Product monitoring error [None]
  - Complication of delivery [None]

NARRATIVE: CASE EVENT DATE: 201703
